FAERS Safety Report 20916579 (Version 1)
Quarter: 2022Q2

REPORT INFORMATION
  Report Type: Spontaneous
  Country: US (occurrence: US)
  Receive Date: 20220605
  Receipt Date: 20220605
  Transmission Date: 20220720
  Serious: No
  Sender: FDA-Public Use
  Company Number: US-drreddys-SPO/USA/22/0150368

PATIENT
  Age: 28 Year
  Sex: Female

DRUGS (1)
  1. ACCUTANE [Suspect]
     Active Substance: ISOTRETINOIN
     Indication: Acne cystic
     Dosage: RMA ISSUE DATE; 24 NOVEMBER 2021,12:00:00 AM

REACTIONS (3)
  - Product dose omission issue [Unknown]
  - Treatment noncompliance [Unknown]
  - Product use in unapproved indication [Unknown]
